FAERS Safety Report 15339295 (Version 4)
Quarter: 2018Q4

REPORT INFORMATION
  Report Type: Spontaneous
  Country: US (occurrence: US)
  Receive Date: 20180831
  Receipt Date: 20181003
  Transmission Date: 20190204
  Serious: Yes (Other)
  Sender: FDA-Public Use
  Company Number: US-TEVA-2018-US-949666

PATIENT
  Age: 80 Year
  Sex: Male

DRUGS (2)
  1. TESTOSTERONE. [Suspect]
     Active Substance: TESTOSTERONE
     Indication: HYPOGONADISM
     Route: 065
     Dates: start: 201710
  2. TESTOSTERONE. [Suspect]
     Active Substance: TESTOSTERONE
     Route: 065
     Dates: start: 201806

REACTIONS (5)
  - Cataract operation [Unknown]
  - Blood testosterone decreased [Unknown]
  - Hyperhidrosis [Unknown]
  - Product physical consistency issue [Unknown]
  - Drug ineffective [Unknown]

NARRATIVE: CASE EVENT DATE: 20180917
